FAERS Safety Report 15538602 (Version 1)
Quarter: 2018Q4

REPORT INFORMATION
  Report Type: Report from Study
  Country: IT (occurrence: IT)
  Receive Date: 20181022
  Receipt Date: 20181022
  Transmission Date: 20190205
  Serious: Yes (Other)
  Sender: FDA-Public Use
  Company Number: IT-MYLANLABS-2018M1078854

PATIENT
  Age: 51 Year
  Sex: Female

DRUGS (2)
  1. MESULID [Suspect]
     Active Substance: NIMESULIDE
     Indication: HEADACHE
     Dosage: 3 DF, UNK
     Route: 048
  2. BRUFEN [Suspect]
     Active Substance: IBUPROFEN
     Indication: HEADACHE
     Dosage: 1 DF, UNK
     Route: 048

REACTIONS (3)
  - Gastritis [Not Recovered/Not Resolved]
  - Duodenal ulcer [Not Recovered/Not Resolved]
  - Erosive duodenitis [Not Recovered/Not Resolved]

NARRATIVE: CASE EVENT DATE: 20180323
